FAERS Safety Report 5988797-0 (Version None)
Quarter: 2008Q4

REPORT INFORMATION
  Report Type: 
  Country: None (occurrence: None)
  Receive Date: 20081204
  Receipt Date: 20081119
  Transmission Date: 20090506
  Serious: Yes (Other)
  Sender: FDA-Public Use
  Company Number: 2007US002849

PATIENT
  Age: 47 Year
  Sex: Male

DRUGS (12)
  1. AMBISOME [Suspect]
     Indication: BRONCHOPULMONARY ASPERGILLOSIS
     Dosage: 150 MG, UID/QD, IV NOS;   300 MG, UID/QD, IV NOS
     Route: 042
     Dates: start: 20070403, end: 20070410
  2. AMBISOME [Suspect]
     Indication: BRONCHOPULMONARY ASPERGILLOSIS
     Dosage: 150 MG, UID/QD, IV NOS;   300 MG, UID/QD, IV NOS
     Route: 042
     Dates: start: 20070411, end: 20070501
  3. PAZUFLOXACIN(PAZUFLOXACIN) [Suspect]
     Indication: DRUG USE FOR UNKNOWN INDICATION
     Dosage: 1 G , UID/QD
     Dates: start: 20070421, end: 20070501
  4. SODIUM CHLORIDE 0.9% [Suspect]
     Dosage: 500 MG, ML
  5. ARBEKACIN (ARBEKACIN) [Suspect]
     Dosage: 200 MG, UID/QD
     Dates: start: 20070421, end: 20070501
  6. MEROPEN (MEROPENEM) [Concomitant]
  7. VANCOMYCIN HYDROCHLORIDE [Concomitant]
  8. LANSOPRAZOLE [Concomitant]
  9. RED BLOOD CELLS [Concomitant]
  10. PLATELETS [Concomitant]
  11. LASIX [Concomitant]
  12. VFEND [Concomitant]

REACTIONS (2)
  - CARDIAC FAILURE [None]
  - HYPOKALAEMIA [None]
